FAERS Safety Report 9391864 (Version 1)
Quarter: 2013Q3

REPORT INFORMATION
  Report Type: Spontaneous
  Country: US (occurrence: None)
  Receive Date: 20130705
  Receipt Date: 20130705
  Transmission Date: 20140515
  Serious: Yes (Hospitalization)
  Sender: FDA-Public Use
  Company Number: 2013-169

PATIENT
  Age: 62 Year
  Sex: Female
  Weight: 59 kg

DRUGS (4)
  1. FAZACLO (CLOZAPINE, USP) ODT (ORAL DISINTEGRATING TABLET) [Suspect]
     Indication: SCHIZOPHRENIA, UNDIFFERENTIATED TYPE
     Route: 048
     Dates: start: 20130406, end: 20130519
  2. FAZACLO (CLOZAPINE, USP) ODT (ORAL DISINTEGRATING TABLET) [Suspect]
     Indication: SCHIZOPHRENIA, PARANOID TYPE
     Route: 048
     Dates: start: 20130406, end: 20130519
  3. HALDOL DECANOATE (HALOPERIDOL DECANOATE) [Concomitant]
  4. COGENTIN (BENZATROPINE MESILATE) [Concomitant]

REACTIONS (6)
  - Schizophrenia [None]
  - Delusion [None]
  - Drooling [None]
  - Treatment noncompliance [None]
  - Epistaxis [None]
  - Refusal of treatment by patient [None]
